FAERS Safety Report 6608857-0 (Version None)
Quarter: 2010Q1

REPORT INFORMATION
  Report Type: 
  Country: None (occurrence: None)
  Receive Date: 20100225
  Receipt Date: 20100225
  Transmission Date: 20100710
  Serious: Yes (Death)
  Sender: FDA-Public Use
  Company Number: None

PATIENT
  Age: 67 Year
  Sex: Female
  Weight: 79.8331 kg

DRUGS (1)
  1. PACLITAXEL [Suspect]
     Indication: BREAST CANCER
     Dosage: 320MG ONCE IV DRIP ONCE
     Route: 041
     Dates: start: 20100115, end: 20100115

REACTIONS (3)
  - DRUG HYPERSENSITIVITY [None]
  - LUNG INFILTRATION [None]
  - RESPIRATORY FAILURE [None]
